FAERS Safety Report 5125945-9 (Version None)
Quarter: 2006Q4

REPORT INFORMATION
  Report Type: 
  Country: None (occurrence: None)
  Receive Date: 20061012
  Receipt Date: 20060906
  Transmission Date: 20070319
  Serious: Yes (Hospitalization, Other)
  Sender: FDA-Public Use
  Company Number: ES-AMGEN-UK192852

PATIENT
  Sex: Male
  Weight: 69 kg

DRUGS (13)
  1. MIMPARA [Suspect]
     Indication: HYPERPARATHYROIDISM SECONDARY
     Route: 048
     Dates: start: 20060807, end: 20060828
  2. ALLOPURINOL [Suspect]
     Route: 065
  3. ANTIHYPERTENSIVES [Concomitant]
     Route: 065
  4. DOXAZOSIN [Concomitant]
     Dates: start: 20040221
  5. ASPIRIN [Concomitant]
     Route: 048
     Dates: start: 20060405
  6. CLOPIDOGREL [Concomitant]
     Route: 048
     Dates: start: 20060405
  7. AMLODIPINE [Concomitant]
     Route: 048
  8. ENALAPRIL MALEATE [Concomitant]
     Route: 048
     Dates: start: 20060720
  9. TRANXILIUM [Concomitant]
  10. PREDNISONE TAB [Concomitant]
     Dates: start: 20060711
  11. PEPSAMAR [Concomitant]
  12. HEPARIN [Concomitant]
  13. TENORMIN [Concomitant]

REACTIONS (20)
  - ABDOMINAL PAIN [None]
  - ARTHRALGIA [None]
  - ASTHENIA [None]
  - BURSITIS [None]
  - CHEST PAIN [None]
  - DISCOMFORT [None]
  - ELECTROCARDIOGRAM CHANGE [None]
  - HAEMODIALYSIS [None]
  - HEADACHE [None]
  - HYPERTENSION [None]
  - HYPERTENSIVE CRISIS [None]
  - INCORRECT DOSE ADMINISTERED [None]
  - MITRAL VALVE CALCIFICATION [None]
  - MUSCULAR WEAKNESS [None]
  - PAPILLARY MUSCLE DISORDER [None]
  - PYREXIA [None]
  - RESPIRATORY TRACT INFECTION [None]
  - TENDON RUPTURE [None]
  - VENTRICULAR HYPERTROPHY [None]
  - WEIGHT INCREASED [None]
